FAERS Safety Report 9415646 (Version 2)
Quarter: 2013Q3

REPORT INFORMATION
  Report Type: Report from Study
  Country: JP (occurrence: JP)
  Receive Date: 20130723
  Receipt Date: 20130807
  Transmission Date: 20140515
  Serious: Yes (Hospitalization)
  Sender: FDA-Public Use
  Company Number: JP-UCBSA-091767

PATIENT
  Age: 77 Year
  Sex: Male
  Weight: 49.8 kg

DRUGS (2)
  1. E KEPPRA [Suspect]
     Indication: COMPLEX PARTIAL SEIZURES
     Route: 048
     Dates: start: 20130313, end: 20130501
  2. SODIUM VALPROATE [Concomitant]
     Indication: LOSS OF CONSCIOUSNESS

REACTIONS (1)
  - Cerebral infarction [Unknown]
